FAERS Safety Report 4577433-6 (Version None)
Quarter: 2005Q1

REPORT INFORMATION
  Report Type: 
  Country: None (occurrence: None)
  Receive Date: 20050208
  Receipt Date: 20050128
  Transmission Date: 20050727
  Serious: Yes (Life-Threatening)
  Sender: FDA-Public Use
  Company Number: 000#8#2005-00099

PATIENT
  Age: 49 Year
  Sex: Female

DRUGS (6)
  1. ISOSORBIDE DINITRATE (DOSE UNKNOWN), SOLUTION (ISOSORBIDE DINITRATE) [Suspect]
     Indication: MYOCARDIAL ISCHAEMIA
     Route: 042
  2. ISOSORBIDE DINITRATE (DOSE UNKNOWN), SOLUTION (ISOSORBIDE DINITRATE) [Suspect]
     Indication: ARTERIOSPASM CORONARY
     Dosage: 10 MG
     Route: 022
  3. DILTIAZEM [Suspect]
     Indication: MYOCARDIAL ISCHAEMIA
     Route: 042
  4. NICORANDIL (NICORANDIL) [Suspect]
     Indication: MYOCARDIAL ISCHAEMIA
     Route: 042
  5. DOPAMINE (DOPAMINE) [Concomitant]
  6. DOBUTAMINE (DOBUTAMINE) [Concomitant]

REACTIONS (4)
  - ARTERIOSPASM CORONARY [None]
  - DRUG INEFFECTIVE [None]
  - MYOCARDIAL ISCHAEMIA [None]
  - POST PROCEDURAL COMPLICATION [None]
